FAERS Safety Report 13478150 (Version 6)
Quarter: 2017Q3

REPORT INFORMATION
  Report Type: Spontaneous
  Country: KR (occurrence: KR)
  Receive Date: 20170425
  Receipt Date: 20170912
  Transmission Date: 20171127
  Serious: Yes (Hospitalization, Other)
  Sender: FDA-Public Use
  Company Number: KR-009507513-1704KOR011665

PATIENT
  Age: 61 Year
  Sex: Female
  Weight: 47.9 kg

DRUGS (20)
  1. DEXAMETHASONE SODIUM PHOSPHATE. [Concomitant]
     Active Substance: DEXAMETHASONE SODIUM PHOSPHATE
     Dosage: 8 MG, QD
     Route: 042
     Dates: start: 20161129, end: 20161130
  2. NASERON [Concomitant]
     Dosage: 0.3 MG, ONCE (AMP)
     Route: 042
     Dates: start: 20161219, end: 20161219
  3. DEXAMETHASONE SODIUM PHOSPHATE. [Concomitant]
     Active Substance: DEXAMETHASONE SODIUM PHOSPHATE
     Dosage: 8 MG, QD
     Route: 042
     Dates: start: 20161220, end: 20161221
  4. RESPILENE (ZIPEPROL HYDROCHLORIDE) [Concomitant]
     Indication: PROPHYLAXIS
     Dosage: 1 TABLET, TID
     Route: 048
     Dates: start: 20161119, end: 20170101
  5. EMEND (FOSAPREPITANT DIMEGLUMINE) [Suspect]
     Active Substance: FOSAPREPITANT DIMEGLUMINE
     Indication: PROPHYLAXIS OF NAUSEA AND VOMITING
     Dosage: 150 MG, ONCE
     Route: 042
     Dates: start: 20161128, end: 20161128
  6. DEXAMETHASONE SODIUM PHOSPHATE. [Concomitant]
     Active Substance: DEXAMETHASONE SODIUM PHOSPHATE
     Indication: PREMEDICATION
     Dosage: 12 MG, ONCE
     Route: 042
     Dates: start: 20161128, end: 20161128
  7. ALMAGEL F [Concomitant]
     Indication: PROPHYLAXIS
     Dosage: 15 ML, QID
     Route: 048
     Dates: start: 20161124
  8. NORZYME [Concomitant]
     Indication: PROPHYLAXIS
     Dosage: 1 CAPSULE, QD
     Route: 048
     Dates: start: 20161121, end: 20161220
  9. LASTET [Concomitant]
     Active Substance: ETOPOSIDE
     Indication: CHEMOTHERAPY
     Dosage: 144 MG, QD (CYCLE 2)
     Route: 042
     Dates: start: 20161219, end: 20161221
  10. DEXAMETHASONE SODIUM PHOSPHATE. [Concomitant]
     Active Substance: DEXAMETHASONE SODIUM PHOSPHATE
     Dosage: 12 MG, ONCE
     Route: 042
     Dates: start: 20161219, end: 20161219
  11. TARGIN [Concomitant]
     Active Substance: NALOXONE HYDROCHLORIDE\OXYCODONE HYDROCHLORIDE
     Indication: PAIN
     Dosage: 1 DF, BID
     Route: 048
     Dates: start: 20161123, end: 20170101
  12. MACPERAN [Concomitant]
     Active Substance: METOCLOPRAMIDE HYDROCHLORIDE
     Indication: PROPHYLAXIS OF NAUSEA AND VOMITING
     Dosage: 10 MG, QD
     Route: 042
     Dates: start: 20161118, end: 20170103
  13. CISPLAN [Concomitant]
     Active Substance: CISPLATIN
     Indication: CARCINOID TUMOUR
     Dosage: 108.7 MG, ONCE (CYCLE 1)
     Route: 042
     Dates: start: 20161128, end: 20161128
  14. CISPLAN [Concomitant]
     Active Substance: CISPLATIN
     Indication: CHEMOTHERAPY
     Dosage: 108 MG, ONCE (CYCLE 2)
     Route: 042
     Dates: start: 20161219, end: 20161219
  15. NASERON [Concomitant]
     Indication: PREMEDICATION
     Dosage: 0.3 MG, ONCE (AMP)
     Route: 042
     Dates: start: 20161128, end: 20161128
  16. EMEND (FOSAPREPITANT DIMEGLUMINE) [Suspect]
     Active Substance: FOSAPREPITANT DIMEGLUMINE
     Dosage: 150 MG, ONCE
     Route: 042
     Dates: start: 20161219, end: 20161219
  17. LASTET [Concomitant]
     Active Substance: ETOPOSIDE
     Indication: CARCINOID TUMOUR
     Dosage: 145 MG, QD (CYCLE 1)
     Route: 042
     Dates: start: 20161128, end: 20161130
  18. MULEX [Concomitant]
     Indication: PAIN
     Dosage: 1 DF, TID
     Route: 048
     Dates: start: 20161124
  19. IRCODON [Concomitant]
     Active Substance: OXYCODONE HYDROCHLORIDE
     Indication: PAIN
     Dosage: 4 TABLETS, PRN
     Route: 048
     Dates: start: 20161117, end: 20170101
  20. MUTERAN [Concomitant]
     Active Substance: ACETYLCYSTEINE
     Indication: PROPHYLAXIS
     Dosage: 1 CAPSULE, TID
     Route: 048
     Dates: start: 20161119

REACTIONS (3)
  - Nausea [Recovered/Resolved]
  - Vomiting [Recovered/Resolved]
  - Vocal cord paralysis [Recovered/Resolved]

NARRATIVE: CASE EVENT DATE: 20161228
